FAERS Safety Report 21893311 (Version 1)
Quarter: 2023Q1

REPORT INFORMATION
  Report Type: Spontaneous
  Country: JP (occurrence: JP)
  Receive Date: 20230121
  Receipt Date: 20230121
  Transmission Date: 20230418
  Serious: Yes (Other)
  Sender: FDA-Public Use
  Company Number: JP-Accord-296326

PATIENT
  Age: 78 Year
  Sex: Male

DRUGS (2)
  1. ETOPOSIDE [Suspect]
     Active Substance: ETOPOSIDE
     Indication: Neuroendocrine carcinoma of prostate
     Dosage: CUMULATIVE COURSE:  17 COURSES
  2. CARBOPLATIN [Suspect]
     Active Substance: CARBOPLATIN
     Indication: Neuroendocrine carcinoma of prostate
     Dosage: CUMULATIVE DOSE: 17 COURSES

REACTIONS (2)
  - Neuropathy peripheral [Unknown]
  - Fatigue [Unknown]
